FAERS Safety Report 19397047 (Version 2)
Quarter: 2021Q3

REPORT INFORMATION
  Report Type: Spontaneous
  Country: US (occurrence: US)
  Receive Date: 20210610
  Receipt Date: 20210803
  Transmission Date: 20211014
  Serious: No
  Sender: FDA-Public Use
  Company Number: US-SA-2021SA192553

PATIENT
  Sex: Male

DRUGS (23)
  1. DOXYCYCLINE HYCLATE. [Concomitant]
     Active Substance: DOXYCYCLINE HYCLATE
     Dosage: UNK
  2. GABITRIL [Concomitant]
     Active Substance: TIAGABINE HYDROCHLORIDE
     Dosage: 100MG
  3. ONFI [Concomitant]
     Active Substance: CLOBAZAM
     Dosage: UNK
  4. VIMPAT [Concomitant]
     Active Substance: LACOSAMIDE
     Dosage: UNK
  5. DUPIXENT [Suspect]
     Active Substance: DUPILUMAB
     Indication: DERMATITIS ATOPIC
     Dosage: 300 MG, QOW
     Route: 058
  6. AMITIZA [Concomitant]
     Active Substance: LUBIPROSTONE
  7. CUREL ADVANCED CERAMIDE THERAPY [Concomitant]
     Active Substance: PETROLATUM
     Dosage: 10MG
  8. VENTOLIN HFA [Concomitant]
     Active Substance: ALBUTEROL SULFATE
  9. SINGULAIR [Concomitant]
     Active Substance: MONTELUKAST SODIUM
     Dosage: 200 MG
  10. DUPIXENT [Suspect]
     Active Substance: DUPILUMAB
     Indication: ILLNESS
  11. VENTOLIN [Concomitant]
     Active Substance: ALBUTEROL SULFATE
  12. VIMPAT [Concomitant]
     Active Substance: LACOSAMIDE
     Dosage: 12MG
  13. CLOBETASOL [Concomitant]
     Active Substance: CLOBETASOL
  14. CLOBETASOL [Concomitant]
     Active Substance: CLOBETASOL
  15. DOXYCYCLINE HYCLATE. [Concomitant]
     Active Substance: DOXYCYCLINE HYCLATE
     Dosage: 10MG
  16. TACROLIMUS. [Concomitant]
     Active Substance: TACROLIMUS
  17. AMITIZA [Concomitant]
     Active Substance: LUBIPROSTONE
     Dosage: 200MG
  18. GABITRIL [Concomitant]
     Active Substance: TIAGABINE HYDROCHLORIDE
     Dosage: UNK
  19. METOPROLOL SUCCINATE. [Concomitant]
     Active Substance: METOPROLOL SUCCINATE
     Dosage: 100MG
  20. ONFI [Concomitant]
     Active Substance: CLOBAZAM
     Dosage: 12MG
  21. PIMECROLIMUS. [Concomitant]
     Active Substance: PIMECROLIMUS
  22. PLAQUENIL [Concomitant]
     Active Substance: HYDROXYCHLOROQUINE SULFATE
  23. COPPERTONE [BENZOPHENONE;PADIMATE O] [Concomitant]
     Dosage: 10MG

REACTIONS (5)
  - Pruritus [Unknown]
  - Rash macular [Unknown]
  - Pain [Unknown]
  - Memory impairment [Unknown]
  - Product use in unapproved indication [Unknown]
